FAERS Safety Report 9807795 (Version 2)
Quarter: 2014Q1

REPORT INFORMATION
  Report Type: Spontaneous
  Country: DE (occurrence: DE)
  Receive Date: 20140110
  Receipt Date: 20140319
  Transmission Date: 20141002
  Serious: No
  Sender: FDA-Public Use
  Company Number: DE-SA-2014SA002197

PATIENT
  Age: 54 Year
  Sex: 0
  Weight: 116 kg

DRUGS (2)
  1. AUBAGIO [Suspect]
     Indication: MULTIPLE SCLEROSIS
     Route: 048
     Dates: start: 20131118
  2. ZOPICLON [Concomitant]
     Indication: INSOMNIA
     Route: 048

REACTIONS (1)
  - Nipple inflammation [Unknown]
